FAERS Safety Report 13170304 (Version 1)
Quarter: 2017Q1

REPORT INFORMATION
  Report Type: Report from Study
  Country: BR (occurrence: BR)
  Receive Date: 20170131
  Receipt Date: 20170131
  Transmission Date: 20170428
  Serious: Yes (Life-Threatening, Other)
  Sender: FDA-Public Use
  Company Number: PHHY2017BR013484

PATIENT
  Age: 57 Year
  Sex: Female

DRUGS (1)
  1. ACLASTA [Suspect]
     Active Substance: ZOLEDRONIC ACID
     Indication: OSTEOPOROSIS
     Route: 065
     Dates: start: 20160127, end: 20160127

REACTIONS (7)
  - Drug hypersensitivity [Unknown]
  - Gait disturbance [Unknown]
  - Urticaria [Unknown]
  - Arrhythmia [Unknown]
  - Asthma [Unknown]
  - Burning sensation [Unknown]
  - Tooth infection [Unknown]

NARRATIVE: CASE EVENT DATE: 20160127
